FAERS Safety Report 16745230 (Version 5)
Quarter: 2022Q2

REPORT INFORMATION
  Report Type: Spontaneous
  Country: US (occurrence: US)
  Receive Date: 20190827
  Receipt Date: 20220504
  Transmission Date: 20220720
  Serious: No
  Sender: FDA-Public Use
  Company Number: US-PFIZER INC-2017161851

PATIENT
  Age: 31 Year
  Sex: Female

DRUGS (41)
  1. LYRICA [Suspect]
     Active Substance: PREGABALIN
     Indication: Arthralgia
     Dosage: 150 MG, 2X/DAY
     Route: 048
  2. LYRICA [Suspect]
     Active Substance: PREGABALIN
     Indication: Neuralgia
     Dosage: 375 MG, DAILY ((75 MG ONCE DAILY AT LUNCH IN ADDITION TO 150 MG TWICE DAILY))
     Route: 048
  3. LYRICA [Suspect]
     Active Substance: PREGABALIN
     Indication: Fibromyalgia
     Dosage: 225 MG, DAILY (TAKE 1 CAPSULE (75 MG) DAILY WITH 150 MG CAPSULE)
  4. LYRICA [Suspect]
     Active Substance: PREGABALIN
     Indication: Neuritis
     Dosage: 75 MG, DAILY (1 CAPSULE DAILY WITH 150 MG CAPSULE)
     Route: 048
  5. AMITIZA [Concomitant]
     Active Substance: LUBIPROSTONE
     Indication: Constipation
     Dosage: 8 UG, 2X/DAY
  6. VITAMIN C [Concomitant]
     Active Substance: ASCORBIC ACID
     Dosage: 1000 MG, 1X/DAY
  7. ASPIRIN [Concomitant]
     Active Substance: ASPIRIN
     Dosage: 81 MG, 1X/DAY, (AT BEDTIME)
  8. VITAMIN B COMPLEX WITH C [Concomitant]
     Active Substance: ASCORBIC ACID\CALCIUM PANTOTHENATE\CYANOCOBALAMIN\NIACINAMIDE\PYRIDOXINE HYDROCHLORIDE\RIBOFLAVIN\TH
     Dosage: 1 DF, 1X/DAY, (LUNCH)
  9. CALCIUM CARBONATE\CHOLECALCIFEROL [Concomitant]
     Active Substance: CALCIUM CARBONATE\CHOLECALCIFEROL
     Dosage: 1 DF, 2X/DAY (CALCIUM 600 MG + VIT. D3 200 IU)
  10. VITAMIN D3 [Concomitant]
     Active Substance: CHOLECALCIFEROL
     Dosage: 2000 IU, 1X/DAY, (LUNCH)
  11. DDAVP [Concomitant]
     Active Substance: DESMOPRESSIN ACETATE
     Dosage: UNK (0.2 MG (DDAVP), DOSAGE DIRECTIONS: 2-3 TABS AM; 1 TAB @ LUNCH; 1/2 TAB @DINNER; 4 TABS @BED.)
  12. DOCUSATE SODIUM [Concomitant]
     Active Substance: DOCUSATE SODIUM
     Indication: Constipation
     Dosage: 100 MG, AS NEEDED, (1 CAPS IN AM AND THEN AT LUNCH)
  13. DOXYCYCLINE [Concomitant]
     Active Substance: DOXYCYCLINE
     Indication: Hidradenitis
     Dosage: 100 MG, 2X/DAY
  14. PEPCID [Concomitant]
     Active Substance: FAMOTIDINE
     Dosage: 20 MG, 1X/DAY
  15. TRICOR [Concomitant]
     Active Substance: FENOFIBRATE
     Dosage: 160 MG, 1X/DAY, (PM)
  16. DIFLUCAN [Concomitant]
     Active Substance: FLUCONAZOLE
     Dosage: 200 MG, ALTERNATE DAY, (EVERY OTHER DAY)
  17. CORTEF [Concomitant]
     Active Substance: HYDROCORTISONE
     Dosage: 10 MG, 2X/DAY
  18. LEVOXYL [Concomitant]
     Active Substance: LEVOTHYROXINE SODIUM
     Dosage: 150 UG (2 TABS ON SUNDAYS AND 1 TAB ON ALL OTHER DAYS.)
  19. LOVAZA [Concomitant]
     Active Substance: OMEGA-3-ACID ETHYL ESTERS
     Dosage: 2 G, 2X/DAY
  20. PROVERA [Concomitant]
     Active Substance: MEDROXYPROGESTERONE ACETATE
     Dosage: 10 MG (1 TABLET AT BEDTIME THE 1ST THRU 12TH DAY OF EA. MO.))
  21. SKELAXIN [Concomitant]
     Active Substance: METAXALONE
     Indication: Muscle spasms
     Dosage: 800 MG, AS NEEDED, (1 TABLET TWICE DAILY, TAKE 1 CAPS PO TWICE DAILY)
     Route: 048
  22. SKELAXIN [Concomitant]
     Active Substance: METAXALONE
     Indication: Fibromyalgia
  23. SKELAXIN [Concomitant]
     Active Substance: METAXALONE
     Indication: Neck pain
  24. PROVIGIL [Concomitant]
     Active Substance: MODAFINIL
     Dosage: 200 MG, DAILY (100 MG, 1 TABLET IN AM + 1 TAB AROUND 2 PM)
  25. MONTELUKAST [Concomitant]
     Active Substance: MONTELUKAST SODIUM
     Dosage: 10 MG, 1X/DAY
  26. PROTONIX [Concomitant]
     Active Substance: PANTOPRAZOLE SODIUM
     Dosage: 40 MG, 1X/DAY, (IN AM)
  27. INDERAL [Concomitant]
     Active Substance: PROPRANOLOL HYDROCHLORIDE
     Dosage: 20 MG, 3X/DAY, (10 MG, 2 TABS THREE TIMES DALLY)
  28. SOLU-CORTEF [Concomitant]
     Active Substance: HYDROCORTISONE SODIUM SUCCINATE
     Indication: Adrenocortical insufficiency acute
     Dosage: 100 MG (INJECT 100 MG (2 ML))
     Route: 030
  29. TERBINAFINE [Concomitant]
     Active Substance: TERBINAFINE
     Dosage: 250 MG, ALTERNATE DAY
  30. VALACYCLOVIR HYDROCHLORIDE [Concomitant]
     Active Substance: VALACYCLOVIR HYDROCHLORIDE
     Dosage: 500 MG, 1X/DAY
  31. VALACYCLOVIR HYDROCHLORIDE [Concomitant]
     Active Substance: VALACYCLOVIR HYDROCHLORIDE
     Dosage: 1 G, UNK (TAKE 1 TAB 3 X DAY FOR 2 DAYS FOR OUTBREAK.)
  32. TRIAMCINOLONE [Concomitant]
     Active Substance: TRIAMCINOLONE
     Indication: Eczema
     Dosage: UNK UNK, AS NEEDED (TOPICALLY TWICE DAILY PRN)
     Route: 061
  33. VIVELLE-DOT [Concomitant]
     Active Substance: ESTRADIOL
     Dosage: UNK, (0.1 MG PATCH, APPLY ONE PATCH TWICE WEEKLY)
  34. EFFEXOR XR [Concomitant]
     Active Substance: VENLAFAXINE HYDROCHLORIDE
     Indication: Depression
     Dosage: 150 MG, 1X/DAY, (AM)
     Route: 048
  35. EFFEXOR XR [Concomitant]
     Active Substance: VENLAFAXINE HYDROCHLORIDE
     Indication: Anxiety
  36. FLUCONAZOLE [Concomitant]
     Active Substance: FLUCONAZOLE
     Indication: Vaginal infection
     Dosage: UNK
  37. FLUCONAZOLE [Concomitant]
     Active Substance: FLUCONAZOLE
     Indication: Vulvovaginal candidiasis
  38. SPIRONOLACTONE [Concomitant]
     Active Substance: SPIRONOLACTONE
     Dosage: 50 MG, UNK
  39. SPIRONOLACTONE [Concomitant]
     Active Substance: SPIRONOLACTONE
     Dosage: 100 MG, UNK
  40. SAVELLA [Concomitant]
     Active Substance: MILNACIPRAN HYDROCHLORIDE
     Dosage: UNK
  41. DICYCLOMINE [Concomitant]
     Active Substance: DICYCLOMINE HYDROCHLORIDE
     Indication: Irritable bowel syndrome
     Dosage: 10 MG, UNK

REACTIONS (4)
  - Upper-airway cough syndrome [Unknown]
  - Cough [Unknown]
  - Fatigue [Unknown]
  - Pain [Unknown]
